FAERS Safety Report 24172754 (Version 4)
Quarter: 2024Q4

REPORT INFORMATION
  Report Type: Report from Study
  Country: CA (occurrence: CA)
  Receive Date: 20240805
  Receipt Date: 20241104
  Transmission Date: 20250115
  Serious: Yes (Hospitalization)
  Sender: ABBVIE
  Company Number: CA-ABBVIE-5863503

PATIENT
  Age: 28 Year
  Sex: Female
  Weight: 46 kg

DRUGS (34)
  1. UPADACITINIB [Suspect]
     Active Substance: UPADACITINIB
     Indication: Colitis ulcerative
     Route: 048
     Dates: start: 20240604, end: 20240714
  2. UPADACITINIB [Suspect]
     Active Substance: UPADACITINIB
     Indication: Colitis ulcerative
     Route: 048
     Dates: start: 20240717
  3. CALCIUM [Concomitant]
     Active Substance: CALCIUM
     Indication: Mineral supplementation
     Route: 048
     Dates: start: 20231012, end: 20240708
  4. VITAMIN D [Concomitant]
     Active Substance: VITAMIN D NOS
     Indication: Vitamin supplementation
     Route: 048
     Dates: start: 20221012
  5. PANTOPRAZOLE [Concomitant]
     Active Substance: PANTOPRAZOLE
     Indication: Gastrooesophageal reflux disease
     Route: 048
     Dates: start: 202403, end: 20240708
  6. FERROUS SULFATE ANHYDROUS [Concomitant]
     Active Substance: FERROUS SULFATE ANHYDROUS
     Indication: Anaemia
     Route: 048
     Dates: start: 20240525, end: 20240620
  7. MONOFERRIC [Concomitant]
     Active Substance: FERRIC DERISOMALTOSE
     Indication: Anaemia
     Route: 042
     Dates: start: 20240621, end: 20240621
  8. PREDNISONE [Concomitant]
     Active Substance: PREDNISONE
     Indication: Immune thrombocytopenia
     Route: 048
     Dates: start: 20200527, end: 202009
  9. PREDNISONE [Concomitant]
     Active Substance: PREDNISONE
     Indication: Immune thrombocytopenia
     Route: 048
     Dates: start: 201812, end: 201904
  10. PREDNISONE [Concomitant]
     Active Substance: PREDNISONE
     Indication: Immune thrombocytopenia
     Route: 048
     Dates: start: 202310, end: 202312
  11. PREDNISONE [Concomitant]
     Active Substance: PREDNISONE
     Indication: Immune thrombocytopenia
     Route: 048
     Dates: start: 202202, end: 202203
  12. PREDNISONE [Concomitant]
     Active Substance: PREDNISONE
     Indication: Immune thrombocytopenia
     Route: 048
     Dates: start: 20240313, end: 20240319
  13. PREDNISONE [Concomitant]
     Active Substance: PREDNISONE
     Indication: Immune thrombocytopenia
     Route: 048
     Dates: start: 20240320, end: 20240326
  14. PREDNISONE [Concomitant]
     Active Substance: PREDNISONE
     Indication: Immune thrombocytopenia
     Route: 048
     Dates: start: 20240327, end: 20240404
  15. PREDNISONE [Concomitant]
     Active Substance: PREDNISONE
     Indication: Immune thrombocytopenia
     Route: 048
     Dates: start: 20240405, end: 20240411
  16. PREDNISONE [Concomitant]
     Active Substance: PREDNISONE
     Indication: Immune thrombocytopenia
     Route: 048
     Dates: start: 20240412, end: 20240418
  17. PREDNISONE [Concomitant]
     Active Substance: PREDNISONE
     Indication: Immune thrombocytopenia
     Route: 048
     Dates: start: 20240419, end: 20240425
  18. PREDNISONE [Concomitant]
     Active Substance: PREDNISONE
     Indication: Immune thrombocytopenia
     Route: 048
     Dates: start: 20240426, end: 20240502
  19. PREDNISONE [Concomitant]
     Active Substance: PREDNISONE
     Indication: Immune thrombocytopenia
     Route: 048
     Dates: start: 20240503, end: 20240510
  20. PREDNISONE [Concomitant]
     Active Substance: PREDNISONE
     Indication: Immune thrombocytopenia
     Route: 048
     Dates: start: 20240511, end: 20240516
  21. PREDNISONE [Concomitant]
     Active Substance: PREDNISONE
     Indication: Immune thrombocytopenia
     Route: 048
     Dates: start: 20160108, end: 201602
  22. PREDNISONE [Concomitant]
     Active Substance: PREDNISONE
     Indication: Immune thrombocytopenia
     Route: 048
     Dates: start: 20160621, end: 201608
  23. PREDNISONE [Concomitant]
     Active Substance: PREDNISONE
     Indication: Immune thrombocytopenia
     Route: 048
     Dates: start: 201706, end: 201708
  24. PREDNISONE [Concomitant]
     Active Substance: PREDNISONE
     Indication: Immune thrombocytopenia
     Route: 048
     Dates: start: 20180716, end: 201809
  25. PREDNISONE [Concomitant]
     Active Substance: PREDNISONE
     Indication: Immune thrombocytopenia
     Route: 048
     Dates: start: 202110, end: 202201
  26. PREDNISONE [Concomitant]
     Active Substance: PREDNISONE
     Indication: Immune thrombocytopenia
     Route: 048
     Dates: start: 202201, end: 202202
  27. PREDNISONE [Concomitant]
     Active Substance: PREDNISONE
     Indication: Immune thrombocytopenia
     Route: 048
     Dates: start: 20240517, end: 20240523
  28. PREDNISONE [Concomitant]
     Active Substance: PREDNISONE
     Indication: Immune thrombocytopenia
     Route: 048
     Dates: start: 20240524, end: 20240530
  29. PREDNISONE [Concomitant]
     Active Substance: PREDNISONE
     Indication: Immune thrombocytopenia
     Route: 048
     Dates: start: 20240531, end: 20240606
  30. PREDNISONE [Concomitant]
     Active Substance: PREDNISONE
     Indication: Immune thrombocytopenia
     Route: 048
     Dates: start: 20240607, end: 20240613
  31. PREDNISONE [Concomitant]
     Active Substance: PREDNISONE
     Indication: Immune thrombocytopenia
     Route: 048
     Dates: start: 20240614, end: 20240620
  32. PREDNISONE [Concomitant]
     Active Substance: PREDNISONE
     Indication: Immune thrombocytopenia
     Route: 048
     Dates: start: 20240621, end: 20240708
  33. PREDNISONE [Concomitant]
     Active Substance: PREDNISONE
     Indication: Immune thrombocytopenia
     Route: 048
     Dates: start: 202203, end: 202206
  34. PREDNISONE [Concomitant]
     Active Substance: PREDNISONE
     Indication: Immune thrombocytopenia
     Route: 048
     Dates: start: 202302, end: 202303

REACTIONS (2)
  - Epiglottitis [Recovered/Resolved]
  - Oropharyngeal pain [Recovered/Resolved]

NARRATIVE: CASE EVENT DATE: 20240601
